FAERS Safety Report 22802368 (Version 5)
Quarter: 2024Q1

REPORT INFORMATION
  Report Type: Spontaneous
  Country: JP (occurrence: JP)
  Receive Date: 20230809
  Receipt Date: 20240311
  Transmission Date: 20240410
  Serious: Yes (Death, Life-Threatening)
  Sender: FDA-Public Use
  Company Number: JP-MTPC-MTPC2023-0019191

PATIENT
  Age: 86 Year
  Sex: Male

DRUGS (10)
  1. ASPIRIN [Suspect]
     Active Substance: ASPIRIN
     Indication: Cerebral infarction
     Dosage: 0.1 GRAM, QD
     Dates: start: 20230714, end: 20230717
  2. BISOPROLOL [Suspect]
     Active Substance: BISOPROLOL\BISOPROLOL FUMARATE
     Indication: Tachycardia
     Dosage: 2 MILLIGRAM, QD
     Route: 061
     Dates: start: 20230713, end: 20230717
  3. ASPIRIN\VONOPRAZAN FUMARATE [Suspect]
     Active Substance: ASPIRIN\VONOPRAZAN FUMARATE
     Indication: Cerebral infarction
     Dosage: 1 DOSAGE FORM, QD
     Route: 048
     Dates: start: 20230628, end: 20230713
  4. LANSOPRAZOLE [Suspect]
     Active Substance: LANSOPRAZOLE
     Indication: Cerebral infarction
     Dosage: 15 MILLIGRAM, QD
     Dates: start: 20230714, end: 20230717
  5. NOVASTAN [Suspect]
     Active Substance: ARGATROBAN
     Dosage: 10 MILLIGRAM, BID
     Route: 041
     Dates: start: 20230625, end: 20230629
  6. NOVASTAN [Suspect]
     Active Substance: ARGATROBAN
     Indication: Cerebral infarction
     Dosage: 60 MILLIGRAM, QD
     Route: 041
     Dates: start: 20230622, end: 20230623
  7. EDARAVONE [Suspect]
     Active Substance: EDARAVONE
     Indication: Cerebral infarction
     Dosage: 30 MILLIGRAM, BID
     Route: 041
     Dates: start: 20230622, end: 20230629
  8. VERAPAMIL HYDROCHLORIDE [Suspect]
     Active Substance: VERAPAMIL HYDROCHLORIDE
     Indication: Tachycardia
     Dosage: 40 MILLIGRAM, BID
     Route: 048
     Dates: start: 20230712, end: 20230712
  9. VERAPAMIL HYDROCHLORIDE [Suspect]
     Active Substance: VERAPAMIL HYDROCHLORIDE
     Dosage: 40 MILLIGRAM, BID
     Dates: start: 20230713, end: 20230717
  10. VERAPAMIL HYDROCHLORIDE [Suspect]
     Active Substance: VERAPAMIL HYDROCHLORIDE
     Indication: Tachycardia
     Dosage: 5 MILLIGRAM, BID
     Route: 042
     Dates: start: 20230713, end: 20230713

REACTIONS (3)
  - Pyrexia [Unknown]
  - Multiple organ dysfunction syndrome [Fatal]
  - Circulatory collapse [Unknown]

NARRATIVE: CASE EVENT DATE: 20230714
